FAERS Safety Report 18142621 (Version 4)
Quarter: 2021Q2

REPORT INFORMATION
  Report Type: Spontaneous
  Country: US (occurrence: US)
  Receive Date: 20200812
  Receipt Date: 20210409
  Transmission Date: 20210717
  Serious: Yes (Hospitalization, Other)
  Sender: FDA-Public Use
  Company Number: US-THERATECHNOLOGIES INC.-2020-THE-TES-000169

PATIENT
  Age: 68 Year
  Sex: Male
  Weight: 85.26 kg

DRUGS (4)
  1. EGRIFTA SV [Suspect]
     Active Substance: TESAMORELIN ACETATE
     Indication: LIPODYSTROPHY ACQUIRED
     Dosage: 1.4 MG, QD
     Route: 058
     Dates: start: 20180105, end: 202103
  2. EGRIFTA [Suspect]
     Active Substance: TESAMORELIN ACETATE
     Indication: PRODUCT USED FOR UNKNOWN INDICATION
     Dosage: UNK
     Route: 058
  3. VITAMIN C ; ROSEHIP [Concomitant]
     Indication: PRODUCT USED FOR UNKNOWN INDICATION
  4. L?ARGININE                         /00126101/ [Concomitant]
     Active Substance: ARGININE
     Indication: PRODUCT USED FOR UNKNOWN INDICATION

REACTIONS (9)
  - Headache [Unknown]
  - Benign neoplasm of prostate [Unknown]
  - Blood pressure increased [Recovering/Resolving]
  - Product administration error [Unknown]
  - Product dose omission issue [Unknown]
  - Dry mouth [Unknown]
  - Prostatic disorder [Recovering/Resolving]
  - Bladder disorder [Not Recovered/Not Resolved]
  - Treatment noncompliance [Unknown]

NARRATIVE: CASE EVENT DATE: 20200802
